FAERS Safety Report 14612588 (Version 1)
Quarter: 2018Q1

REPORT INFORMATION
  Report Type: Spontaneous
  Country: US (occurrence: US)
  Receive Date: 20180307
  Receipt Date: 20180307
  Transmission Date: 20180509
  Serious: No
  Sender: FDA-Public Use
  Company Number: None

PATIENT
  Age: 62 Year
  Sex: Female

DRUGS (22)
  1. LETAIRIS [Suspect]
     Active Substance: AMBRISENTAN
     Indication: CONNECTIVE TISSUE DISORDER
     Route: 048
     Dates: start: 20171201, end: 20180108
  2. VITAMIN B12 [Concomitant]
     Active Substance: CYANOCOBALAMIN
  3. VITAMIN D3 [Concomitant]
     Active Substance: CHOLECALCIFEROL
  4. MOUTHWASH: DEXAMETHASONE-DIPHENHYDRAMINE-NYSTATIN ORAL SUSP [Concomitant]
  5. GENTAMICIN. [Concomitant]
     Active Substance: GENTAMICIN
  6. RANITIDINE. [Concomitant]
     Active Substance: RANITIDINE
  7. CELLCEPT [Concomitant]
     Active Substance: MYCOPHENOLATE MOFETIL\MYCOPHENOLATE MOFETIL HYDROCHLORIDE
  8. TORSEMIDE. [Concomitant]
     Active Substance: TORSEMIDE
  9. AMLODIPINE [Concomitant]
     Active Substance: AMLODIPINE BESYLATE
  10. DULERA HFA [Concomitant]
  11. PILOCARPNE [Concomitant]
  12. LETAIRIS [Suspect]
     Active Substance: AMBRISENTAN
     Indication: PULMONARY ARTERIAL HYPERTENSION
     Route: 048
     Dates: start: 20171201, end: 20180108
  13. ESTRACE [Concomitant]
     Active Substance: ESTRADIOL
  14. LETAIRIS [Suspect]
     Active Substance: AMBRISENTAN
     Indication: HEART DISEASE CONGENITAL
     Route: 048
     Dates: start: 20171201, end: 20180108
  15. BETAMETHASONE DIPROPIONATE TOP OINT [Concomitant]
  16. BENZONATATE. [Concomitant]
     Active Substance: BENZONATATE
  17. AEROCHAMBER [Concomitant]
     Active Substance: DEVICE
  18. REVATIO [Concomitant]
     Active Substance: SILDENAFIL CITRATE
  19. PREDNISONE. [Concomitant]
     Active Substance: PREDNISONE
  20. FLONASE [Concomitant]
     Active Substance: FLUTICASONE PROPIONATE
  21. ALBUTEROL NEB SOLN, 0.083% [Concomitant]
     Active Substance: ALBUTEROL
  22. VENTOLIN HFA [Concomitant]
     Active Substance: ALBUTEROL SULFATE

REACTIONS (2)
  - Therapy change [None]
  - Dyspnoea [None]

NARRATIVE: CASE EVENT DATE: 20180108
